FAERS Safety Report 12790544 (Version 1)
Quarter: 2016Q3

REPORT INFORMATION
  Report Type: Spontaneous
  Country: US (occurrence: US)
  Receive Date: 20160929
  Receipt Date: 20160929
  Transmission Date: 20161109
  Serious: No
  Sender: FDA-Public Use
  Company Number: US-TEVA-692759USA

PATIENT
  Age: 48 Year
  Sex: Female

DRUGS (2)
  1. PRAZOSIN [Suspect]
     Active Substance: PRAZOSIN
     Route: 065
     Dates: start: 201606
  2. SAPHRIS [Suspect]
     Active Substance: ASENAPINE MALEATE
     Indication: BIPOLAR DISORDER
     Dosage: 20 MILLIGRAM DAILY;
     Dates: start: 20160621

REACTIONS (3)
  - Tremor [Unknown]
  - Feeling abnormal [Unknown]
  - Skin reaction [Unknown]
